FAERS Safety Report 5363537-7 (Version None)
Quarter: 2007Q2

REPORT INFORMATION
  Report Type: 
  Country: None (occurrence: None)
  Receive Date: 20070618
  Receipt Date: 20070618
  Transmission Date: 20071010
  Serious: Yes (Other)
  Sender: FDA-Public Use
  Company Number: None

PATIENT
  Age: 36 Year
  Sex: Female
  Weight: 72.5755 kg

DRUGS (2)
  1. PROAIR HFA [Suspect]
     Indication: ASTHMA
     Dosage: 90MCG PRN ENDOTRACHEA
     Route: 007
     Dates: start: 20070322, end: 20070420
  2. PROAIR HFA [Suspect]
     Indication: ASTHMA
     Dosage: 90MCG PRN ENDOTRACHEA
     Route: 007
     Dates: start: 20070420, end: 20070615

REACTIONS (3)
  - ASPHYXIA [None]
  - DRUG INEFFECTIVE [None]
  - WHEEZING [None]
